FAERS Safety Report 25901120 (Version 1)
Quarter: 2025Q4

REPORT INFORMATION
  Report Type: Spontaneous
  Country: JP (occurrence: JP)
  Receive Date: 20251009
  Receipt Date: 20251009
  Transmission Date: 20260118
  Serious: Yes (Other)
  Sender: AMGEN
  Company Number: JP-AMGEN-JPNSP2025198631

PATIENT
  Age: 8 Decade
  Sex: Male

DRUGS (2)
  1. IMDELLTRA [Suspect]
     Active Substance: TARLATAMAB-DLLE
     Indication: Small cell lung cancer
     Dosage: 1 MILLIGRAM, FIRST DOSE, DRIP INFUSION
     Route: 040
     Dates: start: 20250618
  2. IMDELLTRA [Suspect]
     Active Substance: TARLATAMAB-DLLE
     Dosage: 10 MILLIGRAM, SUBSEQUENT DOSES, DRIP INFUSION
     Route: 040
     Dates: start: 2025, end: 20250914

REACTIONS (1)
  - Small cell lung cancer metastatic [Unknown]

NARRATIVE: CASE EVENT DATE: 20250101
